FAERS Safety Report 6603305-9 (Version None)
Quarter: 2010Q1

REPORT INFORMATION
  Report Type: 
  Country: None (occurrence: None)
  Receive Date: 20100226
  Receipt Date: 20090812
  Transmission Date: 20100710
  Serious: No
  Sender: FDA-Public Use
  Company Number: A0703337A

PATIENT
  Age: 40 Year
  Sex: Male

DRUGS (6)
  1. VALTREX [Suspect]
     Indication: GENITAL HERPES
     Dosage: 500MG TWICE PER DAY
     Route: 048
     Dates: start: 20071018
  2. ZOVIRAX [Suspect]
     Indication: GENITAL HERPES
     Route: 048
     Dates: start: 19870101
  3. XANAX [Concomitant]
  4. VICODIN [Concomitant]
  5. TOBRADEX [Concomitant]
  6. NAPROSYN [Concomitant]

REACTIONS (7)
  - DRUG INEFFECTIVE [None]
  - EYE COMPLICATION ASSOCIATED WITH DEVICE [None]
  - EYE PAIN [None]
  - PAIN IN EXTREMITY [None]
  - PHOTOPHOBIA [None]
  - PRODUCT QUALITY ISSUE [None]
  - ULCER [None]
